FAERS Safety Report 25145744 (Version 1)
Quarter: 2025Q2

REPORT INFORMATION
  Report Type: Spontaneous
  Country: NL (occurrence: NL)
  Receive Date: 20250401
  Receipt Date: 20250401
  Transmission Date: 20250717
  Serious: Yes (Disabling)
  Sender: PFIZER
  Company Number: None

PATIENT
  Age: 57 Year
  Sex: Female
  Weight: 82 kg

DRUGS (1)
  1. SALAZOPYRINE [Suspect]
     Active Substance: SULFASALAZINE
     Dosage: BUILD UP IN 4 WEEKS TO 500MG 4X/DAY
     Route: 048
     Dates: start: 20240213, end: 20240308

REACTIONS (4)
  - Small fibre neuropathy [Not Recovered/Not Resolved]
  - Pyrexia [Not Recovered/Not Resolved]
  - Arthralgia [Not Recovered/Not Resolved]
  - Rash pruritic [Not Recovered/Not Resolved]
